FAERS Safety Report 20939958 (Version 1)
Quarter: 2022Q2

REPORT INFORMATION
  Report Type: Spontaneous
  Country: US (occurrence: US)
  Receive Date: 20220609
  Receipt Date: 20220609
  Transmission Date: 20220720
  Serious: Yes (Death, Other)
  Sender: FDA-Public Use
  Company Number: US-SA-SAC20220607001769

PATIENT
  Age: 72 Year
  Sex: Male

DRUGS (2)
  1. MENTHOL [Suspect]
     Active Substance: MENTHOL
     Dosage: UNK
     Route: 061
     Dates: start: 1976, end: 1990
  2. TALC [Suspect]
     Active Substance: TALC
     Dosage: UNK, QD
     Route: 061
     Dates: start: 1972, end: 2010

REACTIONS (6)
  - Peritoneal mesothelioma malignant [Fatal]
  - Impaired quality of life [Unknown]
  - Injury [Unknown]
  - Pain [Unknown]
  - Emotional distress [Unknown]
  - Anxiety [Unknown]

NARRATIVE: CASE EVENT DATE: 20210601
